FAERS Safety Report 8418062-3 (Version None)
Quarter: 2012Q2

REPORT INFORMATION
  Report Type: 
  Country: None (occurrence: None)
  Receive Date: 20120607
  Receipt Date: 20120426
  Transmission Date: 20120825
  Serious: Yes (Hospitalization, Other)
  Sender: FDA-Public Use
  Company Number: FR-RANBAXY-2012RR-56068

PATIENT
  Age: 53 Year
  Sex: Male

DRUGS (1)
  1. METFORMIN HCL [Suspect]
     Indication: TYPE 2 DIABETES MELLITUS
     Dosage: UNK
     Route: 065

REACTIONS (20)
  - HYPOPERFUSION [None]
  - TOXICITY TO VARIOUS AGENTS [None]
  - TACHYCARDIA [None]
  - NEUROLOGICAL DECOMPENSATION [None]
  - DISORIENTATION [None]
  - HALLUCINATION [None]
  - PANCREATITIS [None]
  - HYPOTHERMIA [None]
  - WITHDRAWAL SYNDROME [None]
  - PSYCHOMOTOR HYPERACTIVITY [None]
  - MYOCARDIAL DEPRESSION [None]
  - LACTIC ACIDOSIS [None]
  - TACHYPNOEA [None]
  - MYDRIASIS [None]
  - ABDOMINAL PAIN UPPER [None]
  - PNEUMONIA [None]
  - OVERDOSE [None]
  - DISTURBANCE IN ATTENTION [None]
  - RENAL FAILURE [None]
  - SHOCK [None]
